FAERS Safety Report 4273177-9 (Version None)
Quarter: 2004Q1

REPORT INFORMATION
  Report Type: 
  Country: None (occurrence: None)
  Receive Date: 20040116
  Receipt Date: 20040105
  Transmission Date: 20041129
  Serious: Yes (Hospitalization, Disabling)
  Sender: FDA-Public Use
  Company Number: WAES 0401USA00156

PATIENT
  Age: 68 Year
  Sex: Male

DRUGS (8)
  1. CORDARONE [Concomitant]
  2. COREG [Concomitant]
  3. ZETIA [Suspect]
     Indication: BLOOD CHOLESTEROL INCREASED
     Route: 048
     Dates: start: 20031201, end: 20031201
  4. ZETIA [Suspect]
     Route: 048
     Dates: start: 20031201, end: 20031201
  5. HYZAAR [Concomitant]
     Route: 048
  6. HYDROCHLOROTHIAZIDE AND TRIAMTERENE [Concomitant]
  7. VIOXX [Concomitant]
     Route: 048
  8. ZOCOR [Concomitant]
     Route: 048

REACTIONS (1)
  - HAEMATOCHEZIA [None]
